FAERS Safety Report 15335152 (Version 2)
Quarter: 2020Q2

REPORT INFORMATION
  Report Type: Spontaneous
  Country: US (occurrence: US)
  Receive Date: 20180830
  Receipt Date: 20200515
  Transmission Date: 20200713
  Serious: Yes (Death, Hospitalization, Other)
  Sender: FDA-Public Use
  Company Number: US-009507513-1808USA011172

PATIENT
  Sex: Female
  Weight: 85.71 kg

DRUGS (3)
  1. JANUVIA [Suspect]
     Active Substance: SITAGLIPTIN PHOSPHATE
     Indication: TYPE 2 DIABETES MELLITUS
     Dosage: 100 MILLIGRAM TABLET, QD
     Route: 048
     Dates: start: 2013, end: 2016
  2. METFORMIN [Concomitant]
     Active Substance: METFORMIN HYDROCHLORIDE
     Indication: DIABETES MELLITUS
  3. JANUVIA [Suspect]
     Active Substance: SITAGLIPTIN PHOSPHATE
     Dosage: UNK

REACTIONS (35)
  - Myocardial ischaemia [Unknown]
  - Hypokalaemia [Recovered/Resolved]
  - Metastatic pulmonary embolism [Unknown]
  - Stress [Unknown]
  - Hiatus hernia [Unknown]
  - Nausea [Unknown]
  - Hydronephrosis [Unknown]
  - Constipation [Recovered/Resolved]
  - Urinary tract infection [Unknown]
  - Skin abrasion [Unknown]
  - Blood urea abnormal [Unknown]
  - Hyponatraemia [Unknown]
  - Diverticulum [Unknown]
  - Asthenia [Unknown]
  - Diverticulitis [Unknown]
  - Pleural effusion [Unknown]
  - Hypertension [Unknown]
  - Vomiting [Unknown]
  - Blood creatinine increased [Unknown]
  - Breath sounds abnormal [Unknown]
  - Acquired oesophageal web [Unknown]
  - Constipation [Unknown]
  - Blood glucose abnormal [Unknown]
  - Blood albumin abnormal [Unknown]
  - Dry mouth [Unknown]
  - Pancreatic carcinoma stage IV [Fatal]
  - Urinary tract infection [Unknown]
  - Abdominal pain lower [Unknown]
  - Dermatophytosis [Unknown]
  - Gastritis [Unknown]
  - Gastric polyps [Unknown]
  - Blood sodium abnormal [Unknown]
  - Tachycardia [Unknown]
  - Pain [Unknown]
  - Dysuria [Unknown]

NARRATIVE: CASE EVENT DATE: 20160909
